FAERS Safety Report 9420005 (Version 1)
Quarter: 2013Q3

REPORT INFORMATION
  Report Type: Report from Study
  Country: CA (occurrence: CA)
  Receive Date: 20130725
  Receipt Date: 20130725
  Transmission Date: 20140515
  Serious: Yes (Hospitalization)
  Sender: FDA-Public Use
  Company Number: CA-GLAXOSMITHKLINE-A0980368C

PATIENT
  Age: 75 Year
  Sex: Male
  Weight: 77.4 kg

DRUGS (10)
  1. OFATUMUMAB [Suspect]
     Indication: CHRONIC LYMPHOCYTIC LEUKAEMIA
     Dosage: 2000MG WEEKLY
     Route: 042
     Dates: start: 20120504
  2. GSK2110183 [Suspect]
     Indication: CHRONIC LYMPHOCYTIC LEUKAEMIA
     Dosage: 125MG PER DAY
     Route: 048
     Dates: start: 20120504
  3. CARDIZEM [Concomitant]
     Indication: ATRIAL FLUTTER
     Route: 048
     Dates: start: 20120531
  4. LIPITOR [Concomitant]
     Indication: HYPERLIPIDAEMIA
     Dosage: 20MG PER DAY
     Route: 048
     Dates: start: 2006, end: 20120606
  5. METOPROLOL [Concomitant]
     Indication: CORONARY ARTERY DISEASE
     Dosage: 25MG TWICE PER DAY
     Route: 048
     Dates: start: 2006, end: 20120605
  6. ASA [Concomitant]
     Indication: PROPHYLAXIS
     Dosage: 81MG PER DAY
     Route: 048
     Dates: start: 2006, end: 20120531
  7. FLUOROURACIL [Concomitant]
     Indication: BASAL CELL CARCINOMA
     Route: 061
     Dates: start: 2010
  8. RABEPRAZOLE [Concomitant]
     Indication: PROPHYLAXIS
     Dosage: 20MG PER DAY
     Route: 048
     Dates: start: 2008, end: 20120605
  9. SERTRALINE [Concomitant]
     Indication: DEPRESSION
     Dosage: 50MG PER DAY
     Route: 048
     Dates: start: 2008, end: 20120606
  10. PRADAXA [Concomitant]
     Indication: ATRIAL FLUTTER
     Route: 048
     Dates: start: 20120531

REACTIONS (1)
  - Atrial fibrillation [Recovered/Resolved]
